FAERS Safety Report 4897439-7 (Version None)
Quarter: 2006Q1

REPORT INFORMATION
  Report Type: 
  Country: None (occurrence: None)
  Receive Date: 20060201
  Receipt Date: 20051011
  Transmission Date: 20060701
  Serious: Yes (Hospitalization)
  Sender: FDA-Public Use
  Company Number: US-KINGPHARMUSA00001-K200501342

PATIENT
  Age: 54 Year
  Sex: Male

DRUGS (5)
  1. ALTACE [Suspect]
     Route: 048
     Dates: end: 20050608
  2. PREVISCAN [Suspect]
     Route: 048
     Dates: start: 20050526, end: 20050608
  3. CLAMOXYL [Suspect]
     Route: 042
     Dates: start: 20050325, end: 20050608
  4. ACETAMINOPHEN [Suspect]
     Dates: end: 20050608
  5. ESOMEPRAZOLE [Suspect]
     Route: 048
     Dates: end: 20050608

REACTIONS (6)
  - AGRANULOCYTOSIS [None]
  - ENDOCARDITIS BACTERIAL [None]
  - HIATUS HERNIA [None]
  - INTERNATIONAL NORMALISED RATIO INCREASED [None]
  - PYREXIA [None]
  - STREPTOCOCCAL INFECTION [None]
